FAERS Safety Report 10071998 (Version 1)
Quarter: 2014Q2

REPORT INFORMATION
  Report Type: Spontaneous
  Country: US (occurrence: None)
  Receive Date: 20140409
  Receipt Date: 20140409
  Transmission Date: 20141212
  Serious: Yes (Death, Hospitalization)
  Sender: FDA-Public Use
  Company Number: 2014-000917

PATIENT
  Sex: Female

DRUGS (1)
  1. ACTONEL [Suspect]
     Route: 048
     Dates: start: 2000

REACTIONS (1)
  - Femur fracture [None]
